FAERS Safety Report 5842442-3 (Version None)
Quarter: 2008Q3

REPORT INFORMATION
  Report Type: 
  Country: None (occurrence: None)
  Receive Date: 20080731
  Receipt Date: 20080626
  Transmission Date: 20090109
  Serious: No
  Sender: FDA-Public Use
  Company Number: US200806006254

PATIENT
  Sex: Female

DRUGS (9)
  1. BYETTA [Suspect]
     Indication: TYPE 2 DIABETES MELLITUS
     Dosage: 10 UG, 2/D, SUBCUTANEOUS
     Route: 058
     Dates: start: 20060101
  2. DRUG USED IN DIABETES [Concomitant]
  3. DEPAKOTE [Concomitant]
  4. HYDRALAZINE HCL [Concomitant]
  5. QUINAPRIL HCL [Concomitant]
  6. VYTORIN [Concomitant]
  7. MECLIZINE [Concomitant]
  8. FUROSEMIDE (FUROSEMIDE) [Concomitant]
  9. BUPROPION HCL [Concomitant]

REACTIONS (2)
  - BLOOD GLUCOSE INCREASED [None]
  - DRUG EFFECT DECREASED [None]
